FAERS Safety Report 9045302 (Version 2)
Quarter: 2013Q1

REPORT INFORMATION
  Report Type: Spontaneous
  Country: US (occurrence: US)
  Receive Date: 20130131
  Receipt Date: 20130215
  Transmission Date: 20140127
  Serious: Yes (Death)
  Sender: FDA-Public Use
  Company Number: US-009507513-1301USA012521

PATIENT
  Age: 79 None
  Sex: Male

DRUGS (5)
  1. SYLATRON [Suspect]
     Indication: MALIGNANT MELANOMA
     Dosage: 346 MG, ONCE
     Route: 058
     Dates: start: 20121129, end: 20121129
  2. FLOMAX (MORNIFLUMATE) [Concomitant]
  3. OMEPRAZOLE [Concomitant]
  4. FINASTERIDE [Concomitant]
  5. DULCOLAX [Concomitant]
     Dosage: UNK, PRN

REACTIONS (1)
  - Death [Fatal]
